FAERS Safety Report 6728349-8 (Version None)
Quarter: 2010Q2

REPORT INFORMATION
  Report Type: 
  Country: None (occurrence: None)
  Receive Date: 20100517
  Receipt Date: 20100513
  Transmission Date: 20101027
  Serious: Yes (Life-Threatening, Other)
  Sender: FDA-Public Use
  Company Number: JP-B.I. PHARMACEUTICALS,INC./RIDGEFIELD-2009-BP-14852NB

PATIENT
  Sex: Female
  Weight: 52.8 kg

DRUGS (50)
  1. MICARDIS [Suspect]
     Indication: HYPERTENSION
     Dosage: 40 MG
     Route: 048
     Dates: start: 20091225, end: 20091226
  2. LENDORMIN D TABLETS [Suspect]
     Indication: INSOMNIA
     Dosage: 0.5DF
     Route: 048
     Dates: start: 20091226, end: 20091226
  3. MYOCOR [Suspect]
     Indication: HYPERTENSION
     Dosage: 25 MG
     Route: 042
     Dates: start: 20091224, end: 20091226
  4. YM150 [Suspect]
     Dates: start: 20091225, end: 20091226
  5. MAINTATE [Suspect]
     Indication: TACHYCARDIA
     Dosage: 5 MG
     Route: 048
     Dates: start: 20091226, end: 20091226
  6. VASOLAN [Suspect]
     Indication: TACHYCARDIA
     Dosage: 120 MG
     Route: 048
     Dates: start: 20091225, end: 20091226
  7. MERCAZOLE [Suspect]
     Indication: BASEDOW'S DISEASE
     Dosage: 10 MG
     Route: 048
     Dates: start: 20091224, end: 20091228
  8. CALBLOCK [Suspect]
     Indication: HYPERTENSION
     Dosage: 16 MG
     Route: 048
     Dates: start: 20091224, end: 20091226
  9. LASIX [Suspect]
     Indication: CARDIAC FAILURE
     Dosage: 20 MG
     Route: 048
     Dates: start: 20091225, end: 20091226
  10. POTASSIUM IODIDE [Suspect]
     Indication: BASEDOW'S DISEASE
     Dosage: 150 MG
     Route: 048
     Dates: start: 20091224, end: 20091228
  11. FERO-GRADUMET [Suspect]
     Indication: IRON DEFICIENCY ANAEMIA
     Dosage: 105 MG
     Route: 048
     Dates: start: 20091224, end: 20091226
  12. HANP [Suspect]
     Indication: CARDIAC FAILURE
     Route: 042
     Dates: start: 20091224, end: 20091226
  13. SUNRYTHM [Suspect]
     Indication: TACHYCARDIA
     Route: 042
     Dates: start: 20091224, end: 20091226
  14. NICARPINE [Suspect]
     Indication: HYPERTENSION
     Dosage: 50 MG
     Route: 042
     Dates: start: 20091224, end: 20091226
  15. SOLU-CORTEF [Concomitant]
     Indication: STEROID THERAPY
     Route: 042
  16. CALONAL [Concomitant]
     Indication: ANTIPYRESIS
     Dosage: 600 MG
     Route: 065
  17. CALCIUM CARBONATE [Concomitant]
     Indication: HYPERTHYROIDISM
     Route: 048
  18. MEROPEN [Concomitant]
     Indication: ANTIBIOTIC PROPHYLAXIS
     Dosage: 1 G
     Route: 042
  19. TENORMIN [Concomitant]
     Indication: HYPERTENSION
     Dosage: 50 MG
     Route: 048
  20. TAKEPRON [Concomitant]
     Indication: PROPHYLAXIS AGAINST GASTROINTESTINAL ULCER
     Dosage: 30 MG
     Route: 048
  21. POTASSIUM CHLORIDE [Concomitant]
     Indication: MINERAL SUPPLEMENTATION
     Route: 065
  22. CALCICOL [Concomitant]
     Indication: RESUSCITATION
     Dosage: 850 MG
     Route: 042
  23. BUMINATE [Concomitant]
     Indication: BLOOD ALBUMIN
     Dosage: 250 ML
     Route: 042
  24. LUGOL CAP [Concomitant]
     Indication: INFECTION PROPHYLAXIS
     Route: 065
  25. ONEALFA [Concomitant]
     Indication: VITAMIN D
     Dosage: 0.5 MCG
     Route: 048
  26. CALCIUM LACTATE [Concomitant]
     Indication: MINERAL SUPPLEMENTATION
     Dosage: 3 G
     Route: 065
  27. CORTRIL [Concomitant]
     Indication: STEROID THERAPY
     Dosage: 4DF
     Route: 048
  28. MUSCURATE [Concomitant]
     Indication: ENDOTRACHEAL INTUBATION
     Dosage: 5 MG
     Route: 042
  29. NOR-ADRENALIN [Concomitant]
     Indication: BLOOD PRESSURE MANAGEMENT
     Dosage: 6 MG
     Route: 042
     Dates: start: 20091227, end: 20091228
  30. INOVAN [Concomitant]
     Indication: BLOOD PRESSURE MANAGEMENT
     Route: 042
     Dates: start: 20091227, end: 20091229
  31. DORMICIUM [Concomitant]
     Indication: SEDATION
     Dosage: 50 MG
     Route: 042
  32. MAGNESOL [Concomitant]
     Indication: MINERAL SUPPLEMENTATION
     Route: 042
  33. BIOFERMIN [Concomitant]
     Dosage: 3 G
     Route: 065
  34. VALTREX [Concomitant]
     Indication: ANTIVIRAL TREATMENT
     Dosage: 1000 MG
     Route: 048
  35. POTASSIUM CHLORIDE [Concomitant]
     Indication: MINERAL SUPPLEMENTATION
     Dosage: 3 G
     Route: 065
  36. ZINC OXIDE [Concomitant]
     Indication: ECZEMA
     Route: 065
  37. BUPRENORPHINE HCL [Concomitant]
     Indication: SEDATIVE THERAPY
     Dosage: 0.4 MG
     Route: 042
  38. LOPEMIN FOR CHILDREN [Concomitant]
     Dosage: 1 MG
     Route: 065
  39. DOBUPUM [Concomitant]
     Indication: BLOOD PRESSURE MANAGEMENT
     Route: 042
     Dates: start: 20091227, end: 20091229
  40. FESIN [Concomitant]
     Indication: IRON DEFICIENCY ANAEMIA
     Dosage: 40 MG
     Route: 042
     Dates: start: 20091227, end: 20100102
  41. SULBACILLIN [Concomitant]
     Indication: INFECTION PROPHYLAXIS
     Route: 042
     Dates: start: 20091227, end: 20100103
  42. FRESH LIQUID PLASMA [Concomitant]
     Indication: PLASMAPHERESIS
     Route: 042
     Dates: start: 20091228, end: 20091229
  43. VEEN-F [Concomitant]
     Indication: TRANSFUSION
     Dosage: 500 ML
     Route: 042
     Dates: start: 20091226, end: 20091227
  44. OMEPROL [Concomitant]
     Indication: PROPHYLAXIS AGAINST GASTROINTESTINAL ULCER
     Dosage: 20 MG
     Route: 042
     Dates: start: 20091227, end: 20100106
  45. EPINEPHRINE [Concomitant]
     Indication: RESUSCITATION
     Route: 042
     Dates: start: 20091226, end: 20091227
  46. XYLOCAINE [Concomitant]
     Indication: ENDOTRACHEAL INTUBATION
     Dosage: 15 ML
     Route: 061
     Dates: start: 20091227, end: 20091227
  47. CONCENTRATED HUMAN RED BLOOD CELLS [Concomitant]
     Indication: ANAEMIA
     Dosage: 8 U
     Dates: start: 20091227, end: 20091227
  48. NOVO HEPARIN [Concomitant]
     Indication: PROPHYLAXIS
     Dosage: 1DF
     Route: 042
     Dates: start: 20091226, end: 20091227
  49. KAYTWO N [Concomitant]
     Indication: COAGULOPATHY
     Route: 042
     Dates: start: 20091227, end: 20091227
  50. NAFAMOSTAT [Concomitant]
     Indication: HAEMODIALYSIS
     Route: 042
     Dates: start: 20091227, end: 20100102

REACTIONS (3)
  - CARDIO-RESPIRATORY ARREST [None]
  - HYPERTHYROIDISM [None]
  - MULTI-ORGAN FAILURE [None]
